FAERS Safety Report 13021114 (Version 1)
Quarter: 2016Q4

REPORT INFORMATION
  Report Type: Spontaneous
  Country: US (occurrence: US)
  Receive Date: 20161209
  Receipt Date: 20161209
  Transmission Date: 20170207
  Serious: No
  Sender: FDA-Public Use
  Company Number: None

PATIENT
  Age: 44 Year
  Sex: Male

DRUGS (1)
  1. CYCLOSPORINE CAP MOD 100MG [Suspect]
     Active Substance: CYCLOSPORINE
     Indication: DERMATITIS

REACTIONS (2)
  - Micturition urgency [None]
  - Abdominal pain [None]

NARRATIVE: CASE EVENT DATE: 20161201
